FAERS Safety Report 7556839-7 (Version None)
Quarter: 2011Q2

REPORT INFORMATION
  Report Type: 
  Country: None (occurrence: None)
  Receive Date: 20110616
  Receipt Date: 20110616
  Transmission Date: 20111010
  Serious: Yes (Life-Threatening)
  Sender: FDA-Public Use
  Company Number: None

PATIENT
  Sex: Female
  Weight: 68.221 kg

DRUGS (3)
  1. ESTRADIOL [Suspect]
     Indication: HORMONE REPLACEMENT THERAPY
     Dosage: 1/2 TABLET DAILY PO
     Route: 048
     Dates: start: 20071125, end: 20110531
  2. ATENOLOL [Concomitant]
  3. SINGULAIR [Concomitant]

REACTIONS (2)
  - PULMONARY EMBOLISM [None]
  - ABDOMINAL PAIN UPPER [None]
